FAERS Safety Report 20644911 (Version 2)
Quarter: 2022Q2

REPORT INFORMATION
  Report Type: Spontaneous
  Country: US (occurrence: US)
  Receive Date: 20220328
  Receipt Date: 20220427
  Transmission Date: 20220721
  Serious: No
  Sender: FDA-Public Use
  Company Number: US-PFIZER INC-202200426387

PATIENT
  Age: 20 Year
  Sex: Female
  Weight: 44 kg

DRUGS (2)
  1. DEPO-PROVERA [Suspect]
     Active Substance: MEDROXYPROGESTERONE ACETATE
     Indication: Contraception
     Dosage: UNK, EVERY 3 MONTHS (104MG INJECTION EVERY 3 MONTHS)
     Dates: start: 2020
  2. DEPO-PROVERA [Suspect]
     Active Substance: MEDROXYPROGESTERONE ACETATE
     Indication: Muscle spasms

REACTIONS (4)
  - Device use issue [Unknown]
  - Device use error [Unknown]
  - Device leakage [Unknown]
  - Drug dose omission by device [Unknown]

NARRATIVE: CASE EVENT DATE: 20220316
